FAERS Safety Report 25099292 (Version 1)
Quarter: 2025Q1

REPORT INFORMATION
  Report Type: Other
  Country: IN (occurrence: IN)
  Receive Date: 20250320
  Receipt Date: 20250320
  Transmission Date: 20250409
  Serious: Yes (Other)
  Sender: DEXCEL LTD.
  Company Number: IN-DEXPHARM-2025-1388

PATIENT

DRUGS (1)
  1. TOFACITINIB [Suspect]
     Active Substance: TOFACITINIB
     Indication: Colitis ulcerative
     Dosage: 10MG TWICE DAILY

REACTIONS (2)
  - Retinal vein occlusion [Unknown]
  - Off label use [Unknown]
